FAERS Safety Report 24773649 (Version 1)
Quarter: 2024Q4

REPORT INFORMATION
  Report Type: Spontaneous
  Country: US (occurrence: US)
  Receive Date: 20241225
  Receipt Date: 20241225
  Transmission Date: 20250114
  Serious: Yes (Hospitalization)
  Sender: ROCHE
  Company Number: US-ROCHE-10000162888

PATIENT
  Age: 3 Year
  Sex: Female

DRUGS (8)
  1. MYCOPHENOLATE MOFETIL [Suspect]
     Active Substance: MYCOPHENOLATE MOFETIL
     Indication: Immunosuppressant drug therapy
     Route: 065
     Dates: start: 201909
  2. MYCOPHENOLATE MOFETIL [Suspect]
     Active Substance: MYCOPHENOLATE MOFETIL
     Dosage: REDUCED TO 20 MG/KG IN DECEMBER 2020;?DISCONTINUED IN JANUARY 2021 DUE TO DIARRHEA
     Route: 065
     Dates: start: 202012, end: 202101
  3. TACROLIMUS [Suspect]
     Active Substance: TACROLIMUS
     Indication: Immunosuppressant drug therapy
     Route: 065
     Dates: start: 201909
  4. PREDNISONE [Suspect]
     Active Substance: PREDNISONE
     Indication: Immunosuppressant drug therapy
     Route: 065
     Dates: start: 201909
  5. CYCLOSPORINE [Suspect]
     Active Substance: CYCLOSPORINE
     Indication: Immunosuppressant drug therapy
     Route: 065
     Dates: start: 202001
  6. AZATHIOPRINE [Suspect]
     Active Substance: AZATHIOPRINE
     Indication: Immunosuppressant drug therapy
     Route: 065
     Dates: start: 202101
  7. SIROLIMUS [Suspect]
     Active Substance: SIROLIMUS
     Indication: Immunosuppressant drug therapy
     Route: 065
     Dates: start: 202005
  8. VALGANCICLOVIR [Concomitant]
     Active Substance: VALGANCICLOVIR
     Indication: Prophylaxis

REACTIONS (10)
  - COVID-19 [Unknown]
  - Epstein-Barr viraemia [Unknown]
  - Cytomegalovirus infection [Unknown]
  - Post transplant lymphoproliferative disorder [Unknown]
  - Diarrhoea [Unknown]
  - Pseudomonas infection [Unknown]
  - Enterococcal infection [Unknown]
  - Enterococcal infection [Unknown]
  - Clostridial infection [Unknown]
  - Fungal infection [Unknown]
